FAERS Safety Report 17808106 (Version 4)
Quarter: 2020Q3

REPORT INFORMATION
  Report Type: Spontaneous
  Country: US (occurrence: US)
  Receive Date: 20200520
  Receipt Date: 20200917
  Transmission Date: 20201102
  Serious: Yes (Hospitalization, Other)
  Sender: FDA-Public Use
  Company Number: US-ENDO PHARMACEUTICALS INC-2020-003855

PATIENT
  Age: 57 Year
  Sex: Male
  Weight: 108.84 kg

DRUGS (2)
  1. XIAFLEX [Suspect]
     Active Substance: COLLAGENASE CLOSTRIDIUM HISTOLYTICUM
     Indication: PEYRONIE^S DISEASE
     Dosage: 0.58 MG, UNKNOWN (CYCLE 2, INJECTION 1 + 2)
     Route: 065
     Dates: start: 201911
  2. XIAFLEX [Suspect]
     Active Substance: COLLAGENASE CLOSTRIDIUM HISTOLYTICUM
     Dosage: 0.58 MG, UNKNOWN (CYCLE 1, INJECTION 1 + 2)
     Route: 065
     Dates: start: 201902

REACTIONS (9)
  - Penile pain [Not Recovered/Not Resolved]
  - Vascular rupture [Not Recovered/Not Resolved]
  - Swelling [Unknown]
  - Scar [Not Recovered/Not Resolved]
  - Nodule [Not Recovered/Not Resolved]
  - Dyspareunia [Unknown]
  - Penile operation [Not Recovered/Not Resolved]
  - Discomfort [Not Recovered/Not Resolved]
  - Penile size reduced [Not Recovered/Not Resolved]

NARRATIVE: CASE EVENT DATE: 2020
